FAERS Safety Report 4517939-9 (Version None)
Quarter: 2004Q4

REPORT INFORMATION
  Report Type: 
  Country: None (occurrence: None)
  Receive Date: 20041201
  Receipt Date: 20041201
  Transmission Date: 20050328
  Serious: No
  Sender: FDA-Public Use
  Company Number: None

PATIENT
  Age: 62 Year
  Sex: Female
  Weight: 51.2565 kg

DRUGS (2)
  1. TAXOL [Suspect]
     Dates: start: 20030414, end: 20030721
  2. CLODRONATE/PLACEBO [Concomitant]
     Dates: start: 20030414

REACTIONS (12)
  - CEREBELLAR INFARCTION [None]
  - DEPRESSION [None]
  - DIZZINESS [None]
  - HEADACHE [None]
  - HOT FLUSH [None]
  - INSOMNIA [None]
  - MUSCLE CRAMP [None]
  - NEUROPATHY PERIPHERAL [None]
  - NUCLEAR MAGNETIC RESONANCE IMAGING BRAIN ABNORMAL [None]
  - PAIN [None]
  - PARAESTHESIA [None]
  - PAROSMIA [None]
